FAERS Safety Report 25876489 (Version 1)
Quarter: 2025Q4

REPORT INFORMATION
  Report Type: Report from Study
  Country: GB (occurrence: GB)
  Receive Date: 20251003
  Receipt Date: 20251003
  Transmission Date: 20260118
  Serious: Yes (Hospitalization)
  Sender: NOVARTIS
  Company Number: GB-002147023-NVSC2025GB134465

PATIENT
  Age: 53 Year
  Sex: Female

DRUGS (1)
  1. SIPONIMOD [Suspect]
     Active Substance: SIPONIMOD
     Indication: Secondary progressive multiple sclerosis
     Dosage: 1 MG, QD
     Route: 048
     Dates: start: 20240304

REACTIONS (22)
  - Migraine with aura [Recovering/Resolving]
  - Haemoglobin increased [Unknown]
  - Red blood cell count increased [Unknown]
  - Lymphocyte count decreased [Unknown]
  - Basophil count decreased [Unknown]
  - Blood potassium increased [Unknown]
  - Alanine aminotransferase increased [Unknown]
  - Aspartate aminotransferase increased [Unknown]
  - Gamma-glutamyltransferase increased [Unknown]
  - Blood cholesterol increased [Unknown]
  - Blood triglycerides increased [Unknown]
  - Low density lipoprotein increased [Unknown]
  - Total cholesterol/HDL ratio increased [Unknown]
  - Blood iron increased [Unknown]
  - Transferrin decreased [Unknown]
  - Apolipoprotein B increased [Unknown]
  - Apolipoprotein B/Apolipoprotein A-1 ratio increased [Unknown]
  - Blood homocysteine increased [Unknown]
  - Insulin resistance [Unknown]
  - High density lipoprotein decreased [Unknown]
  - Headache [Unknown]
  - Aphasia [Recovered/Resolved]
